FAERS Safety Report 8024921-6 (Version None)
Quarter: 2012Q1

REPORT INFORMATION
  Report Type: 
  Country: None (occurrence: None)
  Receive Date: 20120103
  Receipt Date: 20110530
  Transmission Date: 20120608
  Serious: Yes (Hospitalization)
  Sender: FDA-Public Use
  Company Number: SE-022847

PATIENT
  Age: 74 Year
  Sex: Female
  Weight: 59.8 kg

DRUGS (1)
  1. (CHLORAMBUCIL) [Suspect]
     Indication: CHRONIC LYMPHOCYTIC LEUKAEMIA
     Dosage: 10 MG/M2
     Route: 048
     Dates: start: 20110221

REACTIONS (2)
  - FEBRILE NEUTROPENIA [None]
  - OROPHARYNGEAL PAIN [None]
